FAERS Safety Report 21299330 (Version 19)
Quarter: 2023Q1

REPORT INFORMATION
  Report Type: Report from Study
  Country: CN (occurrence: None)
  Receive Date: 20220906
  Receipt Date: 20230327
  Transmission Date: 20230417
  Serious: Yes (Life-Threatening)
  Sender: FDA-Public Use
  Company Number: CN-Eisai Medical Research-EC-2022-122560

PATIENT
  Age: 48 Year
  Sex: Male
  Weight: 77.1 kg

DRUGS (12)
  1. LENVATINIB [Suspect]
     Active Substance: LENVATINIB
     Indication: Renal cell carcinoma
     Dosage: STARTING DOSE AT 20 MG, FLUCTUATED DOSAGE
     Route: 048
     Dates: start: 20220804, end: 20220829
  2. PEMBROLIZUMAB [Suspect]
     Active Substance: PEMBROLIZUMAB
     Indication: Renal cell carcinoma
     Route: 041
     Dates: start: 20220804, end: 20220804
  3. BELZUTIFAN [Suspect]
     Active Substance: BELZUTIFAN
     Indication: Renal cell carcinoma
     Dosage: STARTING DOSE AT 120 MG, FLUCTUATED DOSAGE
     Route: 048
     Dates: start: 20220804, end: 20220829
  4. NIFEDIPINE [Concomitant]
     Active Substance: NIFEDIPINE
     Dates: start: 201905
  5. IBUPROFEN [Concomitant]
     Active Substance: IBUPROFEN
     Dates: start: 20220815, end: 20220817
  6. AMOXICILLIN\CLAVULANATE POTASSIUM [Concomitant]
     Active Substance: AMOXICILLIN\CLAVULANATE POTASSIUM
     Route: 042
     Dates: start: 20220816, end: 20220901
  7. DEXTROSE AND SODIUM CHLORIDE [Concomitant]
     Active Substance: DEXTROSE MONOHYDRATE\SODIUM CHLORIDE
     Route: 041
     Dates: start: 20220816, end: 20220819
  8. DEXAMETHASONE SODIUM PHOSPHATE [Concomitant]
     Active Substance: DEXAMETHASONE SODIUM PHOSPHATE
     Route: 042
     Dates: start: 20220816, end: 20220817
  9. ASCORBIC ACID [Concomitant]
     Active Substance: ASCORBIC ACID
     Route: 042
     Dates: start: 20220816, end: 20220820
  10. ASPIRIN LYSINE [Concomitant]
     Active Substance: ASPIRIN LYSINE
     Route: 030
     Dates: start: 20220816, end: 20220816
  11. POTASSIUM CHLORIDE [Concomitant]
     Active Substance: POTASSIUM CHLORIDE
     Route: 042
     Dates: start: 20220818, end: 20220820
  12. ESTAZOLAM [Concomitant]
     Active Substance: ESTAZOLAM
     Dosage: FREQUENCY: ONCE
     Route: 048
     Dates: start: 20220818, end: 20220818

REACTIONS (1)
  - Anaphylactic reaction [Recovered/Resolved]

NARRATIVE: CASE EVENT DATE: 20220829
